FAERS Safety Report 7245751-9 (Version None)
Quarter: 2011Q1

REPORT INFORMATION
  Report Type: 
  Country: None (occurrence: None)
  Receive Date: 20110126
  Receipt Date: 20110117
  Transmission Date: 20110831
  Serious: Yes (Death)
  Sender: FDA-Public Use
  Company Number: FR-ALLERGAN-1016651US

PATIENT
  Age: 90 Year
  Sex: Male

DRUGS (1)
  1. OZURDEX [Suspect]
     Indication: RETINAL VEIN OCCLUSION
     Dosage: UNK
     Route: 031
     Dates: start: 20101021, end: 20101021

REACTIONS (3)
  - RENAL FAILURE [None]
  - INTRAOCULAR PRESSURE INCREASED [None]
  - RESPIRATORY DISORDER [None]
